FAERS Safety Report 9681908 (Version 1)
Quarter: 2013Q4

REPORT INFORMATION
  Report Type: Spontaneous
  Country: GB (occurrence: GB)
  Receive Date: 20131111
  Receipt Date: 20131111
  Transmission Date: 20140711
  Serious: Yes (Other)
  Sender: FDA-Public Use
  Company Number: PHHY2013GB124761

PATIENT
  Age: 40 Year
  Sex: Female
  Weight: 53.52 kg

DRUGS (2)
  1. METRONIDAZOLE [Suspect]
     Dosage: UNK
     Route: 048
  2. IRON [Concomitant]

REACTIONS (3)
  - Mechanical urticaria [Not Recovered/Not Resolved]
  - Urticaria chronic [Not Recovered/Not Resolved]
  - Pruritus [Unknown]
